FAERS Safety Report 23989323 (Version 1)
Quarter: 2024Q2

REPORT INFORMATION
  Report Type: Spontaneous
  Country: US (occurrence: US)
  Receive Date: 20240619
  Receipt Date: 20240619
  Transmission Date: 20240715
  Serious: Yes (Other)
  Sender: FDA-Public Use
  Company Number: US-BAYER-2024A085647

PATIENT
  Age: 93 Year
  Sex: Female

DRUGS (4)
  1. KERENDIA [Suspect]
     Active Substance: FINERENONE
     Dosage: UNK
     Dates: end: 20240608
  2. AMLODIPINE [Concomitant]
     Active Substance: AMLODIPINE BESYLATE
     Indication: Hypertension
  3. METOPROLOL [Concomitant]
     Active Substance: METOPROLOL
     Indication: Hypertension
  4. XARELTO [Concomitant]
     Active Substance: RIVAROXABAN
     Indication: Hypertension

REACTIONS (2)
  - Blood pressure decreased [Not Recovered/Not Resolved]
  - Blood potassium abnormal [None]
